FAERS Safety Report 6804415-3 (Version None)
Quarter: 2010Q2

REPORT INFORMATION
  Report Type: 
  Country: None (occurrence: None)
  Receive Date: 20100628
  Receipt Date: 20070403
  Transmission Date: 20101027
  Serious: Yes (Other)
  Sender: FDA-Public Use
  Company Number: US-PFIZER INC-2007017809

PATIENT
  Sex: Female

DRUGS (3)
  1. GEODON [Suspect]
     Dates: start: 20040201
  2. ZOLOFT [Suspect]
     Dosage: QD: EVERY DAY
  3. ZYPREXA [Concomitant]
     Dates: end: 20040201

REACTIONS (1)
  - TARDIVE DYSKINESIA [None]
